FAERS Safety Report 16287112 (Version 2)
Quarter: 2019Q2

REPORT INFORMATION
  Report Type: Spontaneous
  Country: IT (occurrence: IT)
  Receive Date: 20190508
  Receipt Date: 20190611
  Transmission Date: 20190711
  Serious: Yes (Other)
  Sender: FDA-Public Use
  Company Number: IT-ROCHE-2311369

PATIENT
  Age: 69 Year
  Sex: Female

DRUGS (12)
  1. AZITHROMYCIN ANHYDROUS. [Concomitant]
     Active Substance: AZITHROMYCIN ANHYDROUS
     Route: 065
  2. RIBAVIRIN. [Concomitant]
     Active Substance: RIBAVIRIN
     Route: 065
  3. TAMIFLU [Suspect]
     Active Substance: OSELTAMIVIR PHOSPHATE
     Route: 065
  4. ZANAMIVIR [Concomitant]
     Active Substance: ZANAMIVIR
     Route: 065
  5. ZANAMIVIR [Concomitant]
     Active Substance: ZANAMIVIR
     Route: 042
  6. DAPTOMYCIN. [Concomitant]
     Active Substance: DAPTOMYCIN
  7. SULFAMETHOXAZOLE/TRIMETHOPRIM [Concomitant]
     Active Substance: SULFAMETHOXAZOLE\TRIMETHOPRIM
     Route: 065
  8. TAMIFLU [Suspect]
     Active Substance: OSELTAMIVIR PHOSPHATE
     Indication: H1N1 INFLUENZA
     Route: 065
  9. MEROPENEM. [Concomitant]
     Active Substance: MEROPENEM
     Route: 065
  10. ZANAMIVIR [Concomitant]
     Active Substance: ZANAMIVIR
     Route: 065
  11. AMANTADINE. [Concomitant]
     Active Substance: AMANTADINE HYDROCHLORIDE
     Route: 065
  12. LINEZOLID. [Concomitant]
     Active Substance: LINEZOLID

REACTIONS (1)
  - Pathogen resistance [Unknown]
